FAERS Safety Report 15863398 (Version 9)
Quarter: 2022Q1

REPORT INFORMATION
  Report Type: Report from Study
  Country: RO (occurrence: RO)
  Receive Date: 20190124
  Receipt Date: 20220118
  Transmission Date: 20220424
  Serious: Yes (Congenital Anomaly, Other)
  Sender: FDA-Public Use
  Company Number: RO-NOVPHSZ-PHHY2017RO148796

PATIENT
  Sex: Male
  Weight: 3 kg

DRUGS (11)
  1. LAMIVUDINE\ZIDOVUDINE [Suspect]
     Active Substance: LAMIVUDINE\ZIDOVUDINE
     Indication: Antiretroviral therapy
     Dosage: UNK UNK, QD
     Route: 064
  2. LAMIVUDINE\ZIDOVUDINE [Suspect]
     Active Substance: LAMIVUDINE\ZIDOVUDINE
     Indication: HIV infection
     Dosage: UNK (MATERNAL DOSE)
     Route: 064
  3. LAMIVUDINE\ZIDOVUDINE [Suspect]
     Active Substance: LAMIVUDINE\ZIDOVUDINE
     Indication: Hepatitis B
  4. NEVIRAPINE [Suspect]
     Active Substance: NEVIRAPINE
     Indication: Product used for unknown indication
     Dosage: 200 MILLIGRAM, BID (400 MILLIGRAM, ONCE A DAY)
     Route: 064
  5. PENICILLIN V POTASSIUM [Suspect]
     Active Substance: PENICILLIN V POTASSIUM
     Indication: Product used for unknown indication
     Dosage: UNK
     Route: 064
  6. VIRAMUNE [Suspect]
     Active Substance: NEVIRAPINE
     Indication: Hepatitis B
     Dosage: UNK
  7. VIRAMUNE [Suspect]
     Active Substance: NEVIRAPINE
     Indication: HIV infection
     Dosage: 400 MILLIGRAM, QD
     Route: 064
  8. COMBIVIR [Suspect]
     Active Substance: LAMIVUDINE\ZIDOVUDINE
     Indication: Antiretroviral therapy
     Dosage: MATERNAL DOSE: ZIDOVUDINE (300 MG BID, ORAL) LAMIVUDINE (150 MG BID, ORAL))
     Route: 064
  9. COMBIVIR [Suspect]
     Active Substance: LAMIVUDINE\ZIDOVUDINE
     Indication: HIV infection
     Dosage: TOTAL DAILY DOSE: 1 TAB/CAPS
     Route: 064
  10. COMBIVIR [Suspect]
     Active Substance: LAMIVUDINE\ZIDOVUDINE
     Indication: Hepatitis B
     Dosage: 900 MG, QD (MATERNAL DOSE)
     Route: 064
  11. COW MILK [Concomitant]
     Active Substance: COW MILK
     Indication: Product used for unknown indication
     Dosage: UNK

REACTIONS (13)
  - Macrocephaly [Unknown]
  - Dandy-Walker syndrome [Not Recovered/Not Resolved]
  - Attention deficit hyperactivity disorder [Unknown]
  - Congenital central nervous system anomaly [Unknown]
  - Ataxia [Unknown]
  - Neurodevelopmental disorder [Unknown]
  - Speech disorder developmental [Unknown]
  - Ventricular enlargement [Unknown]
  - Cerebellar hypoplasia [Unknown]
  - Premature baby [Unknown]
  - Cyst [Unknown]
  - Foetal exposure during pregnancy [Recovered/Resolved]
  - Cerebral cyst [Unknown]

NARRATIVE: CASE EVENT DATE: 20110305
